FAERS Safety Report 12326379 (Version 1)
Quarter: 2016Q2

REPORT INFORMATION
  Report Type: Spontaneous
  Country: US (occurrence: US)
  Receive Date: 20160503
  Receipt Date: 20160503
  Transmission Date: 20160815
  Serious: No
  Sender: FDA-Public Use
  Company Number: US-BAYER-2016-084719

PATIENT
  Age: 22 Year
  Sex: Female
  Weight: 77.98 kg

DRUGS (1)
  1. ALEVE [Suspect]
     Active Substance: NAPROXEN SODIUM
     Indication: MIGRAINE
     Dosage: 1 DF, ONCE
     Route: 048
     Dates: start: 20160429, end: 20160429

REACTIONS (1)
  - Product use issue [None]

NARRATIVE: CASE EVENT DATE: 20160429
